FAERS Safety Report 5403156-7 (Version None)
Quarter: 2007Q3

REPORT INFORMATION
  Report Type: 
  Country: None (occurrence: None)
  Receive Date: 20070801
  Receipt Date: 20070720
  Transmission Date: 20080115
  Serious: Yes (Hospitalization, Other)
  Sender: FDA-Public Use
  Company Number: DE-PFIZER INC-2001070259DE

PATIENT
  Sex: Male
  Weight: 86 kg

DRUGS (6)
  1. GENOTROPIN [Suspect]
     Indication: HYPOPITUITARISM
     Dosage: DAILY DOSE:.3MG-FREQ:DAILY
     Route: 058
     Dates: start: 20000425, end: 20010827
  2. GENOTROPIN [Suspect]
     Route: 058
     Dates: start: 20040512, end: 20060125
  3. LEVOTHYROXINE SODIUM [Concomitant]
     Dosage: DAILY DOSE:100MCG-FREQ:DAILY
     Route: 048
  4. HYDROCORTISONE [Concomitant]
     Route: 048
  5. TESTOVIRON [Concomitant]
     Dosage: TEXT:250 MILLIGRAM-FREQ:EVERY 3 WEEKS
     Route: 030
  6. DESMOPRESSIN [Concomitant]
     Dosage: FREQ:2-3 TIMES A DAY

REACTIONS (3)
  - CRANIOPHARYNGIOMA [None]
  - NEOPLASM RECURRENCE [None]
  - PITUITARY TUMOUR BENIGN [None]
